FAERS Safety Report 15880021 (Version 1)
Quarter: 2019Q1

REPORT INFORMATION
  Report Type: Spontaneous
  Country: IT (occurrence: IT)
  Receive Date: 20190128
  Receipt Date: 20190128
  Transmission Date: 20190417
  Serious: Yes (Hospitalization)
  Sender: FDA-Public Use
  Company Number: PHHY2019IT018430

PATIENT
  Age: 44 Year
  Sex: Female

DRUGS (2)
  1. DELORAZEPAM [Suspect]
     Active Substance: DELORAZEPAM
     Indication: DRUG ABUSE
     Dosage: 1 ?G/L, TOTAL
     Route: 048
     Dates: start: 20181231, end: 20181231
  2. IBUPROFEN. [Suspect]
     Active Substance: IBUPROFEN
     Indication: DRUG ABUSE
     Dosage: 3200 MG, TOTAL
     Route: 048
     Dates: start: 20181231, end: 20181231

REACTIONS (2)
  - Intentional self-injury [Recovered/Resolved]
  - Bradyphrenia [Recovered/Resolved]

NARRATIVE: CASE EVENT DATE: 20181231
